FAERS Safety Report 20110777 (Version 1)
Quarter: 2021Q4

REPORT INFORMATION
  Report Type: Report from Study
  Country: KR (occurrence: KR)
  Receive Date: 20211124
  Receipt Date: 20211124
  Transmission Date: 20220303
  Serious: Yes (Hospitalization)
  Sender: FDA-Public Use
  Company Number: KR-ABBVIE-21P-090-4169486-00

PATIENT
  Age: 40 Year
  Sex: Female
  Weight: 64.1 kg

DRUGS (15)
  1. ELSUBRUTINIB [Suspect]
     Active Substance: ELSUBRUTINIB
     Indication: Systemic lupus erythematosus
     Route: 048
     Dates: start: 20210527, end: 20211114
  2. UPADACITINIB [Suspect]
     Active Substance: UPADACITINIB
     Indication: Systemic lupus erythematosus
     Route: 048
     Dates: start: 20210527, end: 20211114
  3. CALTRATE [Concomitant]
     Active Substance: CALCIUM CARBONATE
     Indication: Prophylaxis
     Route: 048
     Dates: start: 20210413
  4. CALTRATE [Concomitant]
     Active Substance: CALCIUM CARBONATE
     Indication: Arthritis
  5. EZETIMIBE\ROSUVASTATIN [Concomitant]
     Active Substance: EZETIMIBE\ROSUVASTATIN
     Indication: Prophylaxis
     Dosage: 10/5 MG
     Route: 048
     Dates: start: 20191023
  6. FOLIC ACID [Concomitant]
     Active Substance: FOLIC ACID
     Indication: Anaemia prophylaxis
     Route: 048
     Dates: start: 20201209
  7. PREDNISOLONE [Concomitant]
     Active Substance: PREDNISOLONE
     Indication: Systemic lupus erythematosus
     Route: 048
     Dates: start: 20120621, end: 20140408
  8. PREDNISOLONE [Concomitant]
     Active Substance: PREDNISOLONE
     Indication: Systemic lupus erythematosus
     Route: 048
     Dates: start: 20160427, end: 20210623
  9. PREDNISOLONE [Concomitant]
     Active Substance: PREDNISOLONE
     Indication: Arthritis
     Route: 048
     Dates: start: 20210624, end: 20210725
  10. PREDNISOLONE [Concomitant]
     Active Substance: PREDNISOLONE
     Route: 048
     Dates: start: 20210624, end: 20210822
  11. PREDNISOLONE [Concomitant]
     Active Substance: PREDNISOLONE
     Route: 048
     Dates: start: 20210726, end: 20210912
  12. PREDNISOLONE [Concomitant]
     Active Substance: PREDNISOLONE
     Route: 048
     Dates: start: 20210823
  13. PREDNISOLONE [Concomitant]
     Active Substance: PREDNISOLONE
     Route: 048
     Dates: start: 20210913
  14. YUHAN METHOTREXATE [Concomitant]
     Indication: Systemic lupus erythematosus
     Route: 048
     Dates: start: 20201209
  15. YUHAN METHOTREXATE [Concomitant]
     Indication: Arthritis

REACTIONS (1)
  - Pneumonia [Not Recovered/Not Resolved]

NARRATIVE: CASE EVENT DATE: 20211115
